FAERS Safety Report 24050920 (Version 8)
Quarter: 2024Q4

REPORT INFORMATION
  Report Type: Spontaneous
  Country: US (occurrence: US)
  Receive Date: 20240704
  Receipt Date: 20241016
  Transmission Date: 20250115
  Serious: No
  Sender: NOVARTIS
  Company Number: US-002147023-NVSC2024US138931

PATIENT
  Sex: Female

DRUGS (4)
  1. TAFINLAR [Suspect]
     Active Substance: DABRAFENIB MESYLATE
     Indication: Illness
     Dosage: 75 MG, Q12H
     Route: 048
     Dates: start: 202403
  2. TAFINLAR [Suspect]
     Active Substance: DABRAFENIB MESYLATE
     Indication: Neoplasm malignant
  3. MEKINIST [Suspect]
     Active Substance: TRAMETINIB DIMETHYL SULFOXIDE
     Indication: Illness
     Dosage: 2 MG, QD
     Route: 048
     Dates: start: 202403
  4. MEKINIST [Suspect]
     Active Substance: TRAMETINIB DIMETHYL SULFOXIDE
     Indication: Neoplasm malignant

REACTIONS (5)
  - Visual impairment [Unknown]
  - Vision blurred [Unknown]
  - Rash vesicular [Unknown]
  - Lymphadenopathy [Unknown]
  - Pyrexia [Unknown]
